FAERS Safety Report 5765391-8 (Version None)
Quarter: 2008Q2

REPORT INFORMATION
  Report Type: 
  Country: None (occurrence: None)
  Receive Date: 20080611
  Receipt Date: 20080530
  Transmission Date: 20081010
  Serious: Yes (Hospitalization)
  Sender: FDA-Public Use
  Company Number: GB-ELI_LILLY_AND_COMPANY-GB200806000120

PATIENT
  Age: 29 Year
  Sex: Male
  Weight: 82 kg

DRUGS (6)
  1. FLUOXETINE HCL [Suspect]
     Indication: DEPRESSION
     Dosage: 20 MG, UNK
  2. FLUOXETINE HCL [Suspect]
     Dosage: 28 D/F, UNK
     Dates: start: 20080101, end: 20080101
  3. KALETRA [Concomitant]
     Indication: HIV INFECTION
     Route: 048
     Dates: start: 20080206, end: 20080428
  4. KALETRA [Concomitant]
     Dosage: 50 D/F, UNK
     Route: 048
     Dates: start: 20080101, end: 20080101
  5. TRUVADA [Concomitant]
     Indication: HIV INFECTION
     Route: 048
     Dates: start: 20080206, end: 20080428
  6. TRUVADA [Concomitant]
     Dosage: 28 D/F, UNK
     Route: 048
     Dates: start: 20080101, end: 20080101

REACTIONS (7)
  - ANXIETY [None]
  - DEPRESSED MOOD [None]
  - DIARRHOEA [None]
  - INSOMNIA [None]
  - MENTAL STATUS CHANGES [None]
  - OVERDOSE [None]
  - VOMITING [None]
